FAERS Safety Report 13923082 (Version 1)
Quarter: 2017Q3

REPORT INFORMATION
  Report Type: Report from Study
  Country: US (occurrence: US)
  Receive Date: 20170831
  Receipt Date: 20170831
  Transmission Date: 20171127
  Serious: Yes (Hospitalization, Other)
  Sender: FDA-Public Use
  Company Number: US-ROCHE-1482460

PATIENT
  Age: 48 Year
  Sex: Male
  Weight: 90.4 kg

DRUGS (2)
  1. BEVACIZUMAB. [Suspect]
     Active Substance: BEVACIZUMAB
     Indication: MALIGNANT MELANOMA
     Route: 065
  2. IPILIMUMAB [Suspect]
     Active Substance: IPILIMUMAB
     Indication: MALIGNANT MELANOMA
     Dosage: 4 TH COURSE?LAST DOSE ADMINISTERED PRIOR TO SAE: 08/OCT/2014.
     Route: 042
     Dates: start: 20140804

REACTIONS (4)
  - Wound dehiscence [Unknown]
  - Lymphocyte count decreased [Unknown]
  - Benign neoplasm [Recovered/Resolved]
  - Acute kidney injury [Unknown]

NARRATIVE: CASE EVENT DATE: 20141022
